FAERS Safety Report 5899068-5 (Version None)
Quarter: 2008Q3

REPORT INFORMATION
  Report Type: 
  Country: None (occurrence: None)
  Receive Date: 20080925
  Receipt Date: 20080918
  Transmission Date: 20090109
  Serious: Yes (Hospitalization)
  Sender: FDA-Public Use
  Company Number: KW-PFIZER INC-2008079465

PATIENT
  Sex: Female

DRUGS (1)
  1. NORVASC [Suspect]
     Indication: PROPHYLAXIS
     Route: 048
     Dates: start: 20000101

REACTIONS (3)
  - CEREBROVASCULAR DISORDER [None]
  - HYPERTENSION [None]
  - INTENTIONAL DRUG MISUSE [None]
